FAERS Safety Report 18953621 (Version 1)
Quarter: 2021Q1

REPORT INFORMATION
  Report Type: Spontaneous
  Country: US (occurrence: US)
  Receive Date: 20210301
  Receipt Date: 20210301
  Transmission Date: 20210420
  Serious: Yes (Hospitalization, Other)
  Sender: FDA-Public Use
  Company Number: None

PATIENT
  Age: 58 Year
  Sex: Female

DRUGS (2)
  1. CAPECITABINE. [Suspect]
     Active Substance: CAPECITABINE
     Indication: ACUTE KIDNEY INJURY
     Dosage: ?          OTHER FREQUENCY:BID X 2 WKS ON;?
     Route: 048
     Dates: start: 20200715
  2. NONE [Concomitant]
     Active Substance: UNSPECIFIED INGREDIENT

REACTIONS (4)
  - Haemorrhage [None]
  - Cerebral haemorrhage [None]
  - Brain operation [None]
  - Cardio-respiratory arrest [None]

NARRATIVE: CASE EVENT DATE: 20210214
